FAERS Safety Report 7758583-X (Version None)
Quarter: 2011Q3

REPORT INFORMATION
  Report Type: 
  Country: None (occurrence: None)
  Receive Date: 20110919
  Receipt Date: 20110907
  Transmission Date: 20111222
  Serious: No
  Sender: FDA-Public Use
  Company Number: US-ELI_LILLY_AND_COMPANY-US201109002685

PATIENT
  Sex: Female

DRUGS (2)
  1. CYMBALTA [Suspect]
     Dosage: 60 MG, QOD
  2. CYMBALTA [Suspect]
     Indication: FIBROMYALGIA
     Dosage: 60 MG, QD
     Dates: start: 20060101

REACTIONS (9)
  - NERVOUSNESS [None]
  - ILLUSION [None]
  - FAECES DISCOLOURED [None]
  - DISTURBANCE IN ATTENTION [None]
  - PAIN [None]
  - LIVER FUNCTION TEST ABNORMAL [None]
  - DEPRESSED MOOD [None]
  - INTENTIONAL DRUG MISUSE [None]
  - DYSPEPSIA [None]
